FAERS Safety Report 8586279-3 (Version None)
Quarter: 2012Q3

REPORT INFORMATION
  Report Type: 
  Country: None (occurrence: None)
  Receive Date: 20120810
  Receipt Date: 20120806
  Transmission Date: 20120928
  Serious: Yes (Life-Threatening, Disabling)
  Sender: FDA-Public Use
  Company Number: EC-ROCHE-1098480

PATIENT
  Age: 59 Year
  Sex: Male

DRUGS (1)
  1. CAPECITABINE [Suspect]
     Indication: OESOPHAGEAL CARCINOMA
     Route: 048
     Dates: start: 20120201

REACTIONS (5)
  - ASTHENIA [None]
  - VOMITING [None]
  - CONSTIPATION [None]
  - MALAISE [None]
  - ABASIA [None]
